FAERS Safety Report 9929757 (Version 1)
Quarter: 2014Q1

REPORT INFORMATION
  Report Type: Spontaneous
  Country: JP (occurrence: JP)
  Receive Date: 20140227
  Receipt Date: 20140227
  Transmission Date: 20141002
  Serious: Yes (Hospitalization)
  Sender: FDA-Public Use
  Company Number: JP-MYLANLABS-2014S1003820

PATIENT
  Age: 13 Year
  Sex: Female

DRUGS (2)
  1. LOXOPROFEN [Suspect]
     Route: 065
  2. DICLOFENAC [Suspect]
     Route: 065

REACTIONS (1)
  - Vanishing bile duct syndrome [Recovering/Resolving]
